FAERS Safety Report 9524314 (Version 1)
Quarter: 2013Q1

REPORT INFORMATION
  Report Type: Spontaneous
  Country: US (occurrence: None)
  Receive Date: 20130313
  Receipt Date: 20130313
  Transmission Date: 20140127
  Serious: No
  Sender: FDA-Public Use
  Company Number: 1000037868

PATIENT
  Age: 46 Year
  Sex: Female

DRUGS (5)
  1. SAVELLA 12.5 MG FOREST PHARMACEUTICALS [Suspect]
     Indication: FIBROMYALGIA
     Dosage: 12.5 MG (12.5 MG, 1 IN 1 D), ORAL
     Route: 048
     Dates: start: 20120803, end: 20120803
  2. CLONIDINE [Concomitant]
  3. AMLODIPINE [Concomitant]
  4. CARVEDILOL [Concomitant]
  5. DEXILANT (DEXLASOPRAZOLE) [Concomitant]

REACTIONS (1)
  - Oedema peripheral [None]
